FAERS Safety Report 13418473 (Version 2)
Quarter: 2017Q2

REPORT INFORMATION
  Report Type: Report from Study
  Country: US (occurrence: US)
  Receive Date: 20170408
  Receipt Date: 20170629
  Transmission Date: 20170830
  Serious: Yes (Hospitalization, Other)
  Sender: FDA-Public Use
  Company Number: PHEH2017US009876

PATIENT
  Age: 67 Year
  Sex: Male

DRUGS (5)
  1. VOTRIENT [Suspect]
     Active Substance: PAZOPANIB HYDROCHLORIDE
     Indication: PAPILLARY THYROID CANCER
     Dosage: 600 MG, QD [400 MG IN AM (MORNING) AND 200 MG IN PM (EVENING)]
     Route: 065
     Dates: start: 201503
  2. SYNTHROID [Concomitant]
     Active Substance: LEVOTHYROXINE SODIUM
     Indication: PRODUCT USED FOR UNKNOWN INDICATION
     Dosage: UNK
     Route: 065
  3. SYNTHROID [Concomitant]
     Active Substance: LEVOTHYROXINE SODIUM
     Dosage: 250 UG, QD
     Route: 065
  4. VOTRIENT [Suspect]
     Active Substance: PAZOPANIB HYDROCHLORIDE
     Indication: METASTASES TO LUNG
     Dosage: UNK
     Route: 065
     Dates: start: 20170224
  5. PRADAXA [Suspect]
     Active Substance: DABIGATRAN ETEXILATE MESYLATE
     Indication: PRODUCT USED FOR UNKNOWN INDICATION
     Dosage: UNK
     Route: 065

REACTIONS (29)
  - Aphasia [Unknown]
  - Wound [Unknown]
  - Blood glucose increased [Unknown]
  - Prothrombin time prolonged [Unknown]
  - Haematocrit decreased [Unknown]
  - Confusional state [Unknown]
  - Amnesia [Unknown]
  - Peripheral swelling [Unknown]
  - Embolic cerebral infarction [Unknown]
  - Disorientation [Unknown]
  - Cerebellar infarction [Unknown]
  - Blood magnesium decreased [Unknown]
  - Weight decreased [Unknown]
  - Papillary thyroid cancer [Unknown]
  - Pleural effusion [Unknown]
  - Neutrophil count increased [Unknown]
  - Lymphocyte count decreased [Unknown]
  - Balance disorder [Unknown]
  - Deep vein thrombosis [Unknown]
  - Blood urea increased [Unknown]
  - Embolic stroke [Recovering/Resolving]
  - Post procedural hypothyroidism [Unknown]
  - Dysphoria [Unknown]
  - Malignant neoplasm progression [Unknown]
  - Red cell distribution width increased [Unknown]
  - Red blood cell count decreased [Unknown]
  - Haemoglobin decreased [Unknown]
  - Fatigue [Unknown]
  - Asthenia [Recovering/Resolving]

NARRATIVE: CASE EVENT DATE: 20160209
